FAERS Safety Report 7272908-3 (Version None)
Quarter: 2011Q1

REPORT INFORMATION
  Report Type: 
  Country: None (occurrence: None)
  Receive Date: 20110203
  Receipt Date: 20110127
  Transmission Date: 20110831
  Serious: Yes (Hospitalization, Other)
  Sender: FDA-Public Use
  Company Number: US-ELI_LILLY_AND_COMPANY-US201005000626

PATIENT
  Sex: Male
  Weight: 102.4 kg

DRUGS (26)
  1. LASIX /USA/ [Concomitant]
     Dosage: 80 MG, DAILY (1/D)
  2. TESTOSTERONE [Concomitant]
     Dosage: 5 G, DAILY (1/D)
  3. SPIRIVA [Concomitant]
     Dosage: 18 UG, UNK
     Route: 055
  4. ZAROXOLYN [Concomitant]
     Dosage: 5 MG, DAILY (1/D) PRIOR FUROSEMIDE
  5. HYDRALAZINE [Concomitant]
     Dosage: 50 MG, 2/D
  6. ADVAIR DISKUS 100/50 [Concomitant]
     Dosage: 1 D/F, 2/D
     Route: 055
  7. ZOCOR [Concomitant]
     Dosage: 80 MG, DAILY (1/D)
  8. ALLOPURINOL [Concomitant]
     Dosage: 100 MG, DAILY (1/D)
  9. BYETTA [Suspect]
     Dosage: 10 UG, 2/D
     Dates: start: 20100121
  10. CALCIUM [Concomitant]
     Indication: BLOOD CALCIUM DECREASED
  11. VIAGRA [Concomitant]
     Dosage: 100 MG, AS NEEDED
  12. POTASSIUM CHLORIDE [Concomitant]
     Dosage: UNK, 2/D
  13. ASCORBIC ACID [Concomitant]
     Dosage: 500 MG, DAILY (1/D)
  14. TRILIPIX [Concomitant]
     Dosage: 45 MG, DAILY (1/D)
  15. MAG-OX [Concomitant]
     Dosage: 1 D/F, DAILY (1/D)
  16. FISH OIL [Concomitant]
     Dosage: 1 G, EACH EVENING
  17. POTASSIUM CHLORIDE [Concomitant]
     Dosage: 20 MEQ, DAILY (1/D)
  18. TESTOSTERONE [Concomitant]
     Dosage: UNK, DAILY (1/D)
     Route: 061
  19. TYLENOL (CAPLET) [Concomitant]
     Dosage: UNK, AS NEEDED
  20. COUMADIN [Concomitant]
     Dosage: 5 MG, DAILY (1/D) (ALTERNATING)
  21. FISH OIL [Concomitant]
     Dosage: 2 G, EACH MORNING
  22. BYETTA [Suspect]
     Dosage: UNK, UNKNOWN
     Route: 058
     Dates: start: 20070401, end: 20080101
  23. TIAZAC                             /00489702/ [Concomitant]
     Dosage: 360 MG, DAILY (1/D)
  24. TEMAZEPAM [Concomitant]
     Dosage: 30 MG, AS NEEDED
  25. COUMADIN [Concomitant]
     Dosage: 6 MG, DAILY (1/D) (ALTERNATING)
  26. INDOCIN [Concomitant]
     Dosage: 75 MG, 2/D AS NEEDED

REACTIONS (3)
  - RENAL FAILURE [None]
  - PANCREATITIS [None]
  - OFF LABEL USE [None]
